FAERS Safety Report 9257283 (Version 1)
Quarter: 2013Q1

REPORT INFORMATION
  Report Type: Spontaneous
  Country: US (occurrence: None)
  Receive Date: 20121212
  Receipt Date: 20121212
  Transmission Date: 20140127
  Serious: No
  Sender: FDA-Public Use
  Company Number: 1209USA006943

PATIENT
  Age: 63 Year
  Sex: Male

DRUGS (2)
  1. VICTRELIS [Suspect]
     Indication: HEPATITIS C
     Route: 048
     Dates: start: 20120718
  2. PEGINTRON [Suspect]
     Route: 058

REACTIONS (5)
  - Haemorrhoids [None]
  - Confusional state [None]
  - Diarrhoea [None]
  - Fatigue [None]
  - Insomnia [None]
